FAERS Safety Report 13000652 (Version 1)
Quarter: 2016Q4

REPORT INFORMATION
  Report Type: Spontaneous
  Country: IT (occurrence: IT)
  Receive Date: 20161206
  Receipt Date: 20161206
  Transmission Date: 20170207
  Serious: Yes (Other)
  Sender: FDA-Public Use
  Company Number: IT-CIPLA LTD.-2016IT22424

PATIENT

DRUGS (11)
  1. CARBOPLATIN. [Suspect]
     Active Substance: CARBOPLATIN
     Indication: OVARIAN CANCER
     Dosage: AUC 5 FOR 6 CYCLE
     Route: 065
     Dates: start: 201004, end: 201008
  2. PACLITAXEL. [Suspect]
     Active Substance: PACLITAXEL
     Dosage: WEEKLY FOR 6 CYCLE
     Route: 065
     Dates: start: 201303, end: 2013
  3. BEVACIZUMAB [Suspect]
     Active Substance: BEVACIZUMAB
     Dosage: UNK, Q3W
     Route: 065
     Dates: start: 201008, end: 201104
  4. TRABECTEDIN [Suspect]
     Active Substance: TRABECTEDIN
     Indication: OVARIAN CANCER
     Dosage: UNK, 6 CYCLES
     Route: 065
     Dates: start: 201104, end: 201107
  5. TRABECTEDIN [Suspect]
     Active Substance: TRABECTEDIN
     Dosage: UNK, 6 CYCLES
     Route: 065
     Dates: start: 201406, end: 201412
  6. PACLITAXEL. [Suspect]
     Active Substance: PACLITAXEL
     Dosage: UNK, WEEKLY
     Route: 065
     Dates: start: 201509
  7. PACLITAXEL. [Suspect]
     Active Substance: PACLITAXEL
     Indication: OVARIAN CANCER
     Dosage: 175 MG/M2, FOR 6 CYCLE
     Route: 065
     Dates: start: 201004, end: 201008
  8. DOXORUBICIN [Suspect]
     Active Substance: DOXORUBICIN
     Dosage: UNK, 6 CYCLES
     Route: 065
     Dates: start: 201406, end: 201412
  9. DOXORUBICIN [Suspect]
     Active Substance: DOXORUBICIN
     Indication: OVARIAN CANCER
     Dosage: UNK, 6 CYCLES
     Route: 065
     Dates: start: 201104, end: 201107
  10. BEVACIZUMAB [Suspect]
     Active Substance: BEVACIZUMAB
     Indication: OVARIAN CANCER
     Dosage: 15 MG/KG, FOR 6 CYCLE
     Route: 065
     Dates: start: 201004, end: 201008
  11. CARBOPLATIN. [Suspect]
     Active Substance: CARBOPLATIN
     Dosage: AUC 5 FOR 6 CYCLE
     Route: 065
     Dates: start: 201303

REACTIONS (2)
  - Ovarian cancer recurrent [Unknown]
  - Neuropathy peripheral [Unknown]
